FAERS Safety Report 5175841-6 (Version None)
Quarter: 2006Q4

REPORT INFORMATION
  Report Type: 
  Country: None (occurrence: None)
  Receive Date: 20061215
  Receipt Date: 20061206
  Transmission Date: 20070319
  Serious: Yes (Hospitalization)
  Sender: FDA-Public Use
  Company Number: US-BRISTOL-MYERS SQUIBB COMPANY-13610258

PATIENT
  Age: 25 Year
  Sex: Male

DRUGS (3)
  1. CYCLOPHOSPHAMIDE [Suspect]
     Indication: HODGKIN'S DISEASE
     Route: 042
     Dates: start: 20020504, end: 20050505
  2. ETOPOSIDE [Suspect]
     Indication: HODGKIN'S DISEASE
     Route: 042
     Dates: start: 20020503, end: 20020505
  3. BUSULFAN [Suspect]
     Indication: HODGKIN'S DISEASE
     Route: 048
     Dates: start: 20020429, end: 20020502

REACTIONS (1)
  - MYELITIS [None]
